FAERS Safety Report 13204673 (Version 1)
Quarter: 2017Q1

REPORT INFORMATION
  Report Type: Spontaneous
  Country: BR (occurrence: BR)
  Receive Date: 20170209
  Receipt Date: 20170209
  Transmission Date: 20170428
  Serious: Yes (Hospitalization, Other)
  Sender: FDA-Public Use
  Company Number: BR-GLAXOSMITHKLINE-BR2017GSK016994

PATIENT
  Sex: Female
  Weight: 55 kg

DRUGS (1)
  1. RELVAR ELLIPTA [Suspect]
     Active Substance: FLUTICASONE FUROATE\VILANTEROL TRIFENATATE
     Indication: ASTHMA
     Dosage: 1 PUFF(S), QD
     Route: 055
     Dates: start: 201608

REACTIONS (4)
  - Intentional product misuse [Not Recovered/Not Resolved]
  - Gallbladder disorder [Unknown]
  - Product use issue [Unknown]
  - Respiratory disorder [Unknown]
